FAERS Safety Report 23703372 (Version 3)
Quarter: 2024Q2

REPORT INFORMATION
  Report Type: Report from Study
  Country: US (occurrence: US)
  Receive Date: 20240403
  Receipt Date: 20240609
  Transmission Date: 20240715
  Serious: Yes (Other)
  Sender: FDA-Public Use
  Company Number: US-002147023-NVSC2024US046884

PATIENT
  Age: 58 Year
  Sex: Female

DRUGS (1)
  1. KESIMPTA [Suspect]
     Active Substance: OFATUMUMAB
     Indication: Product used for unknown indication
     Dosage: UNK, QW
     Route: 065
     Dates: start: 20240222

REACTIONS (16)
  - Suicidal ideation [Unknown]
  - Impaired gastric emptying [Unknown]
  - Pollakiuria [Not Recovered/Not Resolved]
  - Thirst [Not Recovered/Not Resolved]
  - Depression [Unknown]
  - Clumsiness [Unknown]
  - Fatigue [Unknown]
  - Weight decreased [Unknown]
  - Sleep disorder [Unknown]
  - Mobility decreased [Unknown]
  - Illness [Unknown]
  - Labyrinthitis [Unknown]
  - Pruritus [Unknown]
  - Anger [Unknown]
  - Arthralgia [Unknown]
  - Therapeutic response shortened [Unknown]

NARRATIVE: CASE EVENT DATE: 20240304
